FAERS Safety Report 8230997-3 (Version None)
Quarter: 2012Q1

REPORT INFORMATION
  Report Type: 
  Country: None (occurrence: None)
  Receive Date: 20120320
  Receipt Date: 20120113
  Transmission Date: 20120608
  Serious: Yes (Other)
  Sender: FDA-Public Use
  Company Number: DSA_55685_2012

PATIENT
  Sex: Male

DRUGS (17)
  1. BETAMETHASONE [Concomitant]
  2. ASPIRIN [Concomitant]
  3. HERBESSER (HERBESSER - DILTIAZEM HYDROCHLORIDE) 1 DF (NOT SPECIFIED) [Suspect]
     Indication: HYPERTENSION
     Dosage: (1 DF TID ORAL)
     Route: 048
     Dates: start: 20111229, end: 20120110
  4. ALEVIATIN /00017401/ (ALEVIATIN-PHENTOIN) 100 MG (NOT SPECIFIED) [Suspect]
     Indication: CONVULSION PROPHYLAXIS
     Dosage: (100 MG BID ORAL), DF
     Dates: start: 20120110, end: 20120111
  5. ALEVIATIN /00017401/ (ALEVIATIN-PHENTOIN) 100 MG (NOT SPECIFIED) [Suspect]
     Indication: CONVULSION PROPHYLAXIS
     Dosage: (100 MG BID ORAL), DF
     Dates: start: 20111227, end: 20120110
  6. CANDESARTAN CILEXETIL [Concomitant]
  7. AMLODIPINE BESYLATE [Concomitant]
  8. TAMSULOSIN HCL [Concomitant]
  9. BESACOLIN [Concomitant]
  10. PLAVIX [Suspect]
     Indication: THROMBOSIS PROPHYLAXIS
     Dosage: (75 MG QD ORAL)
     Route: 048
     Dates: start: 20111026, end: 20120113
  11. PLAVIX [Suspect]
     Indication: CEREBRAL INFARCTION
     Dosage: (75 MG QD ORAL)
     Route: 048
     Dates: start: 20111026, end: 20120113
  12. ZOLPIDEM [Concomitant]
  13. METHYCOBAL [Concomitant]
  14. CEFAZOLIN SODIUM [Concomitant]
  15. LANSOPRAZOLE [Concomitant]
  16. ANAESTHETICS [Concomitant]
  17. PLETAL [Concomitant]

REACTIONS (2)
  - NEUTROPENIA [None]
  - GRANULOCYTOPENIA [None]
